FAERS Safety Report 4626788-2 (Version None)
Quarter: 2005Q2

REPORT INFORMATION
  Report Type: 
  Country: None (occurrence: None)
  Receive Date: 20050401
  Receipt Date: 20050401
  Transmission Date: 20051028
  Serious: Yes (Life-Threatening, Hospitalization, Disabling, Other)
  Sender: FDA-Public Use
  Company Number: None

PATIENT
  Age: 14 Year
  Sex: Female
  Weight: 54.4316 kg

DRUGS (1)
  1. PROZAC [Suspect]
     Indication: DEPRESSION
     Dosage: 60 MG. 3X DAILY ORAL
     Route: 048
     Dates: start: 19970301, end: 20000710

REACTIONS (7)
  - ABNORMAL BEHAVIOUR [None]
  - GROWTH RETARDATION [None]
  - MENTAL DISORDER [None]
  - SELF INJURIOUS BEHAVIOUR [None]
  - SUICIDE ATTEMPT [None]
  - TIC [None]
  - WEIGHT INCREASED [None]
